FAERS Safety Report 13642782 (Version 3)
Quarter: 2017Q3

REPORT INFORMATION
  Report Type: Spontaneous
  Country: US (occurrence: US)
  Receive Date: 20170612
  Receipt Date: 20170828
  Transmission Date: 20171127
  Serious: Yes (Other)
  Sender: FDA-Public Use
  Company Number: US-PFIZER INC-2017252555

PATIENT
  Age: 31 Year
  Sex: Female

DRUGS (16)
  1. PIMOZIDE. [Concomitant]
     Active Substance: PIMOZIDE
     Indication: TORTICOLLIS
     Dosage: UNK
  2. CLONAZEPAM. [Concomitant]
     Active Substance: CLONAZEPAM
     Indication: TORTICOLLIS
     Dosage: UNK
  3. CLONIDINE. [Concomitant]
     Active Substance: CLONIDINE
     Indication: TORTICOLLIS
     Dosage: UNK
  4. VARENICLINE TARTRATE [Suspect]
     Active Substance: VARENICLINE TARTRATE
     Indication: SMOKING CESSATION THERAPY
     Dosage: UNK
  5. LAMOTRIGINE. [Concomitant]
     Active Substance: LAMOTRIGINE
     Indication: TORTICOLLIS
     Dosage: UNK
  6. GUANFACINE. [Concomitant]
     Active Substance: GUANFACINE
     Indication: TORTICOLLIS
     Dosage: UNK
  7. BACLOFEN. [Concomitant]
     Active Substance: BACLOFEN
     Indication: TORTICOLLIS
     Dosage: UNK
  8. BOTULINUM TOXIN [Concomitant]
     Active Substance: BOTULINUM TOXIN NOS
     Indication: TORTICOLLIS
     Dosage: UNK
     Route: 042
  9. BUPROPION. [Concomitant]
     Active Substance: BUPROPION
     Indication: TORTICOLLIS
     Dosage: UNK
  10. LITHIUM. [Concomitant]
     Active Substance: LITHIUM
     Indication: TORTICOLLIS
     Dosage: UNK
  11. RISPERIDONE. [Concomitant]
     Active Substance: RISPERIDONE
     Indication: TORTICOLLIS
     Dosage: UNK
  12. PERGOLIDE [Concomitant]
     Active Substance: PERGOLIDE
     Indication: TORTICOLLIS
     Dosage: UNK
  13. ZIPRASIDONE. [Concomitant]
     Active Substance: ZIPRASIDONE
     Indication: TORTICOLLIS
     Dosage: UNK
  14. TETRABENAZINE. [Concomitant]
     Active Substance: TETRABENAZINE
     Indication: TORTICOLLIS
     Dosage: UNK
  15. QUETIAPINE. [Concomitant]
     Active Substance: QUETIAPINE
     Indication: TORTICOLLIS
     Dosage: UNK
  16. FLUPHENAZINE [Concomitant]
     Active Substance: FLUPHENAZINE
     Indication: TORTICOLLIS
     Dosage: UNK

REACTIONS (2)
  - Condition aggravated [Recovering/Resolving]
  - Tourette^s disorder [Recovering/Resolving]
